FAERS Safety Report 4535428-2 (Version None)
Quarter: 2004Q4

REPORT INFORMATION
  Report Type: 
  Country: None (occurrence: None)
  Receive Date: 20041222
  Receipt Date: 20031112
  Transmission Date: 20050328
  Serious: Yes (Life-Threatening, Hospitalization, Disabling, Other)
  Sender: FDA-Public Use
  Company Number: US-MERCK-0311USA01342

PATIENT
  Age: 49 Year
  Sex: Male
  Weight: 95 kg

DRUGS (10)
  1. ZOCOR [Suspect]
     Indication: BLOOD CHOLESTEROL INCREASED
     Route: 048
     Dates: start: 20030707, end: 20031024
  2. ZOCOR [Suspect]
     Route: 048
     Dates: start: 20030501, end: 20030706
  3. KETOCONAZOLE [Suspect]
     Route: 065
  4. MEVACOR [Concomitant]
     Route: 048
     Dates: start: 20030414, end: 20030429
  5. BUSPIRONE HYDROCHLORIDE [Concomitant]
     Indication: ANXIETY
     Route: 065
  6. LITHIUM ACETATE [Concomitant]
     Route: 065
  7. FLUTICASONE PROPIONATE [Concomitant]
     Route: 065
  8. DIPHENHYDRAMINE HYDROCHLORIDE [Concomitant]
     Route: 065
  9. NICOTINE [Concomitant]
     Route: 065
  10. THIORIDAZINE [Concomitant]
     Route: 065

REACTIONS (22)
  - ABDOMINAL DISTENSION [None]
  - ABDOMINAL PAIN UPPER [None]
  - ADVERSE EVENT [None]
  - ANOREXIA [None]
  - CONSTIPATION [None]
  - DISTURBANCE IN ATTENTION [None]
  - DRUG INEFFECTIVE [None]
  - DYSPEPSIA [None]
  - EMOTIONAL DISTRESS [None]
  - FATIGUE [None]
  - FIBROMYALGIA [None]
  - HEART RATE IRREGULAR [None]
  - INFLUENZA LIKE ILLNESS [None]
  - LEUKAEMIA [None]
  - MEDICATION ERROR [None]
  - MUSCLE ATROPHY [None]
  - MYALGIA [None]
  - MYOPATHY [None]
  - NEUROPATHY PERIPHERAL [None]
  - PHARMACEUTICAL PRODUCT COMPLAINT [None]
  - PYREXIA [None]
  - SUICIDAL IDEATION [None]
